FAERS Safety Report 7023033-8 (Version None)
Quarter: 2010Q3

REPORT INFORMATION
  Report Type: 
  Country: None (occurrence: None)
  Receive Date: 20100930
  Receipt Date: 20100921
  Transmission Date: 20110219
  Serious: Yes (Death)
  Sender: FDA-Public Use
  Company Number: GR-SANOFI-AVENTIS-2010SA056619

PATIENT

DRUGS (6)
  1. OXALIPLATIN [Suspect]
  2. OXALIPLATIN [Suspect]
  3. CAPECITABINE [Suspect]
     Dosage: DAY 1-7
  4. CAPECITABINE [Suspect]
     Dosage: DAY 1-7
  5. BEVACIZUMAB [Suspect]
  6. BEVACIZUMAB [Suspect]

REACTIONS (1)
  - SUDDEN DEATH [None]
